FAERS Safety Report 16920329 (Version 1)
Quarter: 2019Q4

REPORT INFORMATION
  Report Type: Report from Study
  Country: CA (occurrence: CA)
  Receive Date: 20191015
  Receipt Date: 20191015
  Transmission Date: 20200122
  Serious: Yes (Death, Life-Threatening, Hospitalization, Other)
  Sender: FDA-Public Use
  Company Number: CA-PFIZER INC-2019441154

PATIENT
  Age: 51 Year
  Sex: Male
  Weight: 127 kg

DRUGS (27)
  1. RITUXAN [Suspect]
     Active Substance: RITUXIMAB
     Indication: GRANULOMATOSIS WITH POLYANGIITIS
     Dosage: 1000 MG, 1 EVERY 6 MONTH(S)
     Route: 042
  2. FENTANYL. [Concomitant]
     Active Substance: FENTANYL
     Dosage: 25 UG, 1 EVERY 72 HOUR(S)
     Route: 065
  3. MYCOPHENOLATE SODIUM [Concomitant]
     Active Substance: MYCOPHENOLATE SODIUM
     Dosage: 360 MG, 3X/DAY
     Route: 065
  4. POTASSIUM CHLORIDE. [Concomitant]
     Active Substance: POTASSIUM CHLORIDE
     Dosage: 600 MG, 2X/DAY
     Route: 065
  5. ONDANSETRON [Concomitant]
     Active Substance: ONDANSETRON
     Dosage: 8 MG, UNK
     Route: 065
  6. RITUXAN [Suspect]
     Active Substance: RITUXIMAB
     Dosage: UNK
     Route: 042
  7. ACETAMINOPHEN. [Concomitant]
     Active Substance: ACETAMINOPHEN
     Dosage: 650 MG, UNK
     Route: 048
  8. CLOPIDOGREL [Concomitant]
     Active Substance: CLOPIDOGREL BISULFATE
     Dosage: UNK
     Route: 065
  9. DIPHENHYDRAMINE HYDROCHLORIDE. [Concomitant]
     Active Substance: DIPHENHYDRAMINE HYDROCHLORIDE
     Indication: PREMEDICATION
     Dosage: 50 MG, UNK
     Route: 048
  10. TRAZODONE [Concomitant]
     Active Substance: TRAZODONE HYDROCHLORIDE
     Dosage: 50 MG, UNK
     Route: 065
  11. FUROSEMIDE. [Concomitant]
     Active Substance: FUROSEMIDE
     Dosage: 80 MG, 1X/DAY
     Route: 065
  12. PANTOPRAZOLE [Concomitant]
     Active Substance: PANTOPRAZOLE
     Dosage: 40 MG, 1X/DAY
     Route: 065
  13. METHOTREXATE SODIUM. [Suspect]
     Active Substance: METHOTREXATE SODIUM
     Dosage: UNK
     Route: 065
  14. CYCLOPHOSPHAMIDE. [Suspect]
     Active Substance: CYCLOPHOSPHAMIDE
     Dosage: UNK
     Route: 042
  15. METFORMIN [Suspect]
     Active Substance: METFORMIN HYDROCHLORIDE
     Dosage: UNK
     Route: 065
  16. ASPIRIN 81 [Concomitant]
     Active Substance: ASPIRIN
     Dosage: 81.0 MG, UNK
     Route: 065
  17. DOXAZOSIN [Concomitant]
     Active Substance: DOXAZOSIN MESYLATE
     Dosage: 2 MG, UNK
     Route: 065
  18. LEFLUNOMIDE. [Concomitant]
     Active Substance: LEFLUNOMIDE
     Dosage: UNK
  19. LORAZEPAM. [Concomitant]
     Active Substance: LORAZEPAM
     Dosage: 0.5 MG, UNK
     Route: 065
  20. VITAMIN B12 [COBAMAMIDE] [Concomitant]
     Dosage: 1000 UG, 1X/DAY
     Route: 065
  21. CYCLOPHOSPHAMIDE. [Suspect]
     Active Substance: CYCLOPHOSPHAMIDE
     Dosage: UNK
     Route: 048
  22. RITUXAN [Suspect]
     Active Substance: RITUXIMAB
     Dosage: 840 MG, 1 EVERY 4 WEEK(S)
     Route: 042
  23. CITALOPRAM [Concomitant]
     Active Substance: CITALOPRAM HYDROBROMIDE
     Dosage: 25 MG, 1X/DAY
     Route: 065
  24. PREDNISONE. [Concomitant]
     Active Substance: PREDNISONE
     Dosage: 9 MG, 1X/DAY
     Route: 065
  25. ROSUVASTATIN. [Concomitant]
     Active Substance: ROSUVASTATIN
     Dosage: 20 MG, 1X/DAY
  26. METHYLPREDNISOLONE. [Concomitant]
     Active Substance: METHYLPREDNISOLONE
     Dosage: 125 MG, UNK
     Route: 042
  27. MYCOPHENOLATE MOFETIL. [Concomitant]
     Active Substance: MYCOPHENOLATE MOFETIL
     Indication: SKIN CANCER
     Dosage: UNK
     Route: 065

REACTIONS (37)
  - Alveolitis [Fatal]
  - Back pain [Fatal]
  - Dyspnoea [Fatal]
  - Fatigue [Fatal]
  - Gout [Fatal]
  - Interstitial lung disease [Fatal]
  - Joint stiffness [Fatal]
  - Nasopharyngitis [Fatal]
  - Nausea [Fatal]
  - Proteinuria [Fatal]
  - Radiculopathy [Fatal]
  - Vomiting [Fatal]
  - Antineutrophil cytoplasmic antibody positive [Fatal]
  - Arthralgia [Fatal]
  - Dizziness [Fatal]
  - Granulomatosis with polyangiitis [Fatal]
  - Intervertebral disc protrusion [Fatal]
  - Malignant melanoma in situ [Fatal]
  - Pulmonary granuloma [Fatal]
  - Death [Fatal]
  - Palpitations [Fatal]
  - Pyrexia [Fatal]
  - Disease recurrence [Fatal]
  - Hypoaesthesia [Fatal]
  - Neoplasm [Fatal]
  - Rash [Fatal]
  - Arteriosclerosis [Fatal]
  - Acne [Fatal]
  - C-reactive protein increased [Fatal]
  - Pneumonia [Fatal]
  - Weight increased [Fatal]
  - Drug hypersensitivity [Fatal]
  - Neutropenia [Fatal]
  - Steroid diabetes [Fatal]
  - Blood creatinine increased [Fatal]
  - Neutrophil count decreased [Fatal]
  - Weight decreased [Fatal]
